FAERS Safety Report 7108878-8 (Version None)
Quarter: 2010Q4

REPORT INFORMATION
  Report Type: 
  Country: None (occurrence: None)
  Receive Date: 20101117
  Receipt Date: 20101109
  Transmission Date: 20110411
  Serious: Yes (Other)
  Sender: FDA-Public Use
  Company Number: UA-ABBOTT-10P-269-0684140-00

PATIENT
  Age: 32 Year
  Sex: Male

DRUGS (5)
  1. TARKA [Suspect]
     Indication: HYPERTENSION
     Dosage: 2/180 MG
     Route: 048
     Dates: start: 20100201, end: 20100401
  2. THYOTRIAZOLINUM [Concomitant]
     Indication: DIENCEPHALIC SYNDROME OF INFANCY
     Route: 042
     Dates: start: 20100201, end: 20100501
  3. THYOTRIAZOLINUM [Concomitant]
     Indication: HYPERTENSION
  4. PIRACETAMUM [Concomitant]
     Indication: DIENCEPHALIC SYNDROME OF INFANCY
     Route: 042
     Dates: start: 20100201, end: 20100501
  5. PIRACETAMUM [Concomitant]
     Indication: HYPERTENSION

REACTIONS (2)
  - BLOOD CREATININE INCREASED [None]
  - ELECTROCARDIOGRAM PQ INTERVAL PROLONGED [None]
